FAERS Safety Report 4268679-5 (Version None)
Quarter: 2004Q1

REPORT INFORMATION
  Report Type: 
  Country: None (occurrence: None)
  Receive Date: 20040109
  Receipt Date: 20031225
  Transmission Date: 20041129
  Serious: Yes (Hospitalization)
  Sender: FDA-Public Use
  Company Number: 30017553-NA01-1

PATIENT
  Age: 63 Year
  Sex: Male

DRUGS (1)
  1. EXTRANEAL [Suspect]
     Indication: PERITONEAL DIALYSIS
     Dosage: 7.5% ICODEXTRIN 2L QD IP
     Dates: start: 20030714, end: 20031216

REACTIONS (5)
  - DIAPHRAGMATIC INJURY [None]
  - FLUID IMBALANCE [None]
  - HAEMODIALYSIS [None]
  - MEDICATION ERROR [None]
  - WEIGHT INCREASED [None]
